FAERS Safety Report 17040575 (Version 1)
Quarter: 2019Q4

REPORT INFORMATION
  Report Type: Spontaneous
  Country: IT (occurrence: IT)
  Receive Date: 20191117
  Receipt Date: 20191117
  Transmission Date: 20200122
  Serious: Yes (Other)
  Sender: FDA-Public Use
  Company Number: NVSC2019IT036491

PATIENT
  Age: 55 Year
  Sex: Female

DRUGS (6)
  1. 5-FLUOROURACIL [Suspect]
     Active Substance: FLUOROURACIL
     Indication: COLORECTAL CANCER METASTATIC
     Dosage: 400 MG/M2 (ON FIRST DAY)
     Route: 042
  2. 5-FLUOROURACIL [Suspect]
     Active Substance: FLUOROURACIL
     Dosage: 2400 MG/M2, Q2W (FOR 46 HOURS)
     Route: 042
  3. OXALIPLATIN. [Suspect]
     Active Substance: OXALIPLATIN
     Indication: COLORECTAL CANCER METASTATIC
     Dosage: 85 MG/M2
     Route: 042
  4. BEVACIZUMAB. [Suspect]
     Active Substance: BEVACIZUMAB
     Indication: COLORECTAL CANCER METASTATIC
     Dosage: UNK
     Route: 065
  5. CALCIUM FOLINATE [Suspect]
     Active Substance: LEUCOVORIN CALCIUM
     Indication: COLORECTAL CANCER METASTATIC
     Dosage: 400 MG/M2
     Route: 042
  6. METHYLPREDISOLONE [Concomitant]
     Active Substance: METHYLPREDNISOLONE
     Indication: THROMBOTIC MICROANGIOPATHY
     Dosage: 1 MG/KG
     Route: 042

REACTIONS (11)
  - Anaemia [Unknown]
  - Oedema peripheral [Unknown]
  - Therapy partial responder [Unknown]
  - Thrombocytopenia [Unknown]
  - Asthenia [Unknown]
  - Hypertension [Unknown]
  - Normochromic anaemia [Unknown]
  - Atypical haemolytic uraemic syndrome [Unknown]
  - Blood lactate dehydrogenase increased [Unknown]
  - Decreased appetite [Unknown]
  - Acute kidney injury [Unknown]
